FAERS Safety Report 7347003-5 (Version None)
Quarter: 2011Q1

REPORT INFORMATION
  Report Type: 
  Country: None (occurrence: None)
  Receive Date: 20110311
  Receipt Date: 20110227
  Transmission Date: 20110831
  Serious: Yes (Other)
  Sender: FDA-Public Use
  Company Number: PHHY2011NL16646

PATIENT
  Sex: Male

DRUGS (2)
  1. CO-DIOVAN [Suspect]
     Dosage: 1 DF, QD
     Dates: start: 20081217
  2. SIMVASTATIN [Concomitant]
     Dosage: UNK

REACTIONS (6)
  - ARRHYTHMIA [None]
  - LOSS OF CONSCIOUSNESS [None]
  - DYSPHEMIA [None]
  - GAIT DISTURBANCE [None]
  - FEELING COLD [None]
  - FREEZING PHENOMENON [None]
